FAERS Safety Report 4585938-7 (Version None)
Quarter: 2005Q1

REPORT INFORMATION
  Report Type: 
  Country: None (occurrence: None)
  Receive Date: 20050214
  Receipt Date: 20050131
  Transmission Date: 20050727
  Serious: Yes (Hospitalization)
  Sender: FDA-Public Use
  Company Number: HQWYE014801FEB05

PATIENT
  Age: 57 Year
  Sex: Female

DRUGS (4)
  1. EFFEXOR XR [Suspect]
     Indication: BIPOLAR I DISORDER
     Dosage: 75 MG 1X PER 1 DAY, ORAL
     Route: 048
     Dates: start: 20030101, end: 20041201
  2. EFFEXOR XR [Suspect]
     Indication: DEPRESSION
     Dosage: 75 MG 1X PER 1 DAY, ORAL
     Route: 048
     Dates: start: 20030101, end: 20041201
  3. EFFEXOR XR [Suspect]
     Dosage: TAPERED VERY SLOWLY (DOSE UNKNOWN), ORAL
     Route: 048
     Dates: start: 20041201
  4. EFFEXOR XR [Suspect]
     Dosage: 75 MG (FREQUENCY UNKNOWN), ORAL
     Route: 048
     Dates: start: 20050117

REACTIONS (5)
  - AGGRESSION [None]
  - ANGINA PECTORIS [None]
  - CONDITION AGGRAVATED [None]
  - DRUG WITHDRAWAL SYNDROME [None]
  - LOSS OF LIBIDO [None]
